FAERS Safety Report 5272567-5 (Version None)
Quarter: 2007Q1

REPORT INFORMATION
  Report Type: 
  Country: None (occurrence: None)
  Receive Date: 20070319
  Receipt Date: 20070313
  Transmission Date: 20070707
  Serious: Yes (Hospitalization)
  Sender: FDA-Public Use
  Company Number: 2007-00075

PATIENT
  Age: 45 Year
  Sex: Female
  Weight: 111.1 kg

DRUGS (6)
  1. VELCADE [Suspect]
     Indication: MULTIPLE MYELOMA
     Dosage: 1.30 MG/M2, IV BOLUS
     Route: 040
     Dates: start: 20070108
  2. VELCADE [Suspect]
  3. DEXAMETHASONE TAB [Suspect]
     Indication: MULTIPLE MYELOMA
     Dosage: 10.00 MG, ORAL
     Route: 048
     Dates: start: 20070108
  4. IBUPROFEN [Concomitant]
  5. ACYCLOVIR [Concomitant]
  6. PRILOSEC [Concomitant]

REACTIONS (11)
  - ABDOMINAL PAIN [None]
  - APPENDIX DISORDER [None]
  - BACK PAIN [None]
  - CALCINOSIS [None]
  - CHEST PAIN [None]
  - DYSPNOEA [None]
  - FAT NECROSIS [None]
  - HAEMATURIA [None]
  - NAUSEA [None]
  - TACHYCARDIA [None]
  - WHITE BLOOD CELL COUNT INCREASED [None]
